FAERS Safety Report 8425665 (Version 14)
Quarter: 2016Q2

REPORT INFORMATION
  Report Type: Report from Study
  Country: CA (occurrence: CA)
  Receive Date: 20120224
  Receipt Date: 20160617
  Transmission Date: 20160815
  Serious: Yes (Hospitalization, Other)
  Sender: FDA-Public Use
  Company Number: PHHY2012CA014281

PATIENT
  Age: 75 Year
  Sex: Female

DRUGS (6)
  1. SANDOSTATIN LAR DEPOT [Suspect]
     Active Substance: OCTREOTIDE ACETATE
     Dosage: 30 MG, EVERY 3 WEEKS
     Route: 030
  2. TAPAZOLE [Concomitant]
     Active Substance: METHIMAZOLE
     Indication: PRODUCT USED FOR UNKNOWN INDICATION
     Route: 065
  3. COUMADIN [Concomitant]
     Active Substance: WARFARIN SODIUM
     Indication: PRODUCT USED FOR UNKNOWN INDICATION
     Route: 065
  4. IRON [Concomitant]
     Active Substance: IRON
     Indication: PRODUCT USED FOR UNKNOWN INDICATION
     Route: 065
  5. VITAMIN D [Concomitant]
     Active Substance: CHOLECALCIFEROL
     Indication: PRODUCT USED FOR UNKNOWN INDICATION
     Route: 065
  6. SANDOSTATIN LAR DEPOT [Suspect]
     Active Substance: OCTREOTIDE ACETATE
     Indication: ACROMEGALY
     Dosage: 30 MG, QMO (EVERY 4 WEEKS)
     Route: 030
     Dates: start: 20100804

REACTIONS (14)
  - Blood pressure increased [Unknown]
  - Secretion discharge [Unknown]
  - Hepatic enzyme increased [Unknown]
  - Inappropriate schedule of drug administration [Unknown]
  - Hypoaesthesia [Recovered/Resolved with Sequelae]
  - Stress [Unknown]
  - Embolic stroke [Recovered/Resolved with Sequelae]
  - Haemorrhage [Unknown]
  - Heart rate decreased [Unknown]
  - Blood pressure diastolic decreased [Unknown]
  - Asthenia [Not Recovered/Not Resolved]
  - Dysstasia [Recovered/Resolved with Sequelae]
  - Renal failure [Not Recovered/Not Resolved]
  - Peripheral swelling [Unknown]

NARRATIVE: CASE EVENT DATE: 20120207
